FAERS Safety Report 17223999 (Version 1)
Quarter: 2020Q1

REPORT INFORMATION
  Report Type: Spontaneous
  Country: US (occurrence: US)
  Receive Date: 20200102
  Receipt Date: 20200102
  Transmission Date: 20200409
  Serious: Yes (Life-Threatening, Other)
  Sender: FDA-Public Use
  Company Number: US-009507513-1912USA012173

PATIENT
  Sex: Male

DRUGS (1)
  1. INTRON A [Suspect]
     Active Substance: INTERFERON ALFA-2B
     Indication: BEHCET^S SYNDROME

REACTIONS (5)
  - Behcet^s syndrome [Unknown]
  - Drug effective for unapproved indication [Unknown]
  - Product availability issue [Unknown]
  - Product use in unapproved indication [Unknown]
  - Road traffic accident [Unknown]
